FAERS Safety Report 18886760 (Version 1)
Quarter: 2021Q1

REPORT INFORMATION
  Report Type: Spontaneous
  Country: DE (occurrence: DE)
  Receive Date: 20210212
  Receipt Date: 20210212
  Transmission Date: 20210420
  Serious: Yes (Death, Other)
  Sender: FDA-Public Use
  Company Number: DE-009507513-2101DEU004045

PATIENT
  Age: 26 Year
  Sex: Female
  Weight: 60 kg

DRUGS (3)
  1. KEYTRUDA [Suspect]
     Active Substance: PEMBROLIZUMAB
     Indication: VULVAL CANCER METASTATIC
  2. KEYTRUDA [Suspect]
     Active Substance: PEMBROLIZUMAB
     Indication: SQUAMOUS CELL CARCINOMA OF THE VULVA
     Dosage: 2 MILLIGRAM/KILOGRAM, Q3W
     Route: 042
     Dates: start: 20171201, end: 20180227
  3. KEYTRUDA [Suspect]
     Active Substance: PEMBROLIZUMAB
     Indication: VULVAL CANCER RECURRENT

REACTIONS (3)
  - Hypothyroidism [Fatal]
  - Lymphoedema [Fatal]
  - Off label use [Unknown]

NARRATIVE: CASE EVENT DATE: 20171220
